FAERS Safety Report 7609143-2 (Version None)
Quarter: 2011Q3

REPORT INFORMATION
  Report Type: 
  Country: None (occurrence: None)
  Receive Date: 20110714
  Receipt Date: 20110704
  Transmission Date: 20111222
  Serious: Yes (Other)
  Sender: FDA-Public Use
  Company Number: FR-ABBOTT-11P-056-0719151-00

PATIENT
  Age: 45 Year
  Sex: Female

DRUGS (4)
  1. HUMIRA [Suspect]
     Indication: PSORIATIC ARTHROPATHY
  2. HUMIRA [Suspect]
     Indication: PSORIASIS
  3. METHOTREXATE [Concomitant]
     Indication: PSORIATIC ARTHROPATHY
  4. HUMIRA [Suspect]
     Indication: ANKYLOSING SPONDYLITIS
     Route: 058

REACTIONS (1)
  - AUTOIMMUNE HEPATITIS [None]
